FAERS Safety Report 4655728-5 (Version None)
Quarter: 2005Q2

REPORT INFORMATION
  Report Type: 
  Country: None (occurrence: None)
  Receive Date: 20050505
  Receipt Date: 20050419
  Transmission Date: 20051028
  Serious: Yes (Other)
  Sender: FDA-Public Use
  Company Number: DE_050415716

PATIENT
  Age: 51 Year
  Sex: Male
  Weight: 75 kg

DRUGS (3)
  1. ZYPREXA [Suspect]
     Indication: RESTLESSNESS
     Dosage: 5 MG DAY
     Dates: start: 20041103
  2. CODIOVAN [Concomitant]
  3. TREVILOR (VENLAFAXINE HYDROCHLORIDE) [Concomitant]

REACTIONS (2)
  - BLOOD CREATINE PHOSPHOKINASE INCREASED [None]
  - CHEST PAIN [None]
